FAERS Safety Report 9007365 (Version 1)
Quarter: 2013Q1

REPORT INFORMATION
  Report Type: Report from Study
  Country: US (occurrence: US)
  Receive Date: 20130110
  Receipt Date: 20130110
  Transmission Date: 20140127
  Serious: Yes (Other)
  Sender: FDA-Public Use
  Company Number: US-US-EMD SERONO, INC.-7185374

PATIENT
  Age: 8 None
  Sex: Female
  Weight: 55 kg

DRUGS (2)
  1. SAIZEN [(SOMATROPIN (RDNA ORIGIN) FOR INJECTION)] [Suspect]
     Indication: GROWTH RETARDATION
     Dosage: 6 DOSES PER WEEK
     Route: 058
     Dates: start: 20120221
  2. SAIZEN [(SOMATROPIN (RDNA ORIGIN) FOR INJECTION)] [Suspect]
     Dosage: 6 DOSES PER WEEK
     Route: 058

REACTIONS (4)
  - Autoimmune thyroiditis [Not Recovered/Not Resolved]
  - Decreased appetite [Not Recovered/Not Resolved]
  - Pain in extremity [Recovered/Resolved]
  - Headache [Recovered/Resolved]
